FAERS Safety Report 6495028-4 (Version None)
Quarter: 2009Q4

REPORT INFORMATION
  Report Type: 
  Country: None (occurrence: None)
  Receive Date: 20091214
  Receipt Date: 20090422
  Transmission Date: 20100525
  Serious: No
  Sender: FDA-Public Use
  Company Number: US-BRISTOL-MYERS SQUIBB COMPANY-14597157

PATIENT
  Age: 20 Year
  Sex: Female
  Weight: 68 kg

DRUGS (5)
  1. ABILIFY [Suspect]
     Indication: BORDERLINE PERSONALITY DISORDER
  2. XYREM [Concomitant]
  3. PROVIGIL [Concomitant]
  4. LAMICTAL [Concomitant]
     Dosage: DOSE INCREASED TO 200 MG ON 21-APR-2009
  5. DEXEDRINE [Concomitant]

REACTIONS (3)
  - IMPULSIVE BEHAVIOUR [None]
  - MANIA [None]
  - SUICIDAL IDEATION [None]
